FAERS Safety Report 9245381 (Version 1)
Quarter: 2013Q2

REPORT INFORMATION
  Report Type: Spontaneous
  Country: US (occurrence: US)
  Receive Date: 20130422
  Receipt Date: 20130422
  Transmission Date: 20140414
  Serious: Yes (Hospitalization)
  Sender: FDA-Public Use
  Company Number: US-GENZYME-FABR-1003190

PATIENT
  Age: 45 Year
  Sex: Female
  Weight: 61.4 kg

DRUGS (8)
  1. FABRAZYME [Suspect]
     Indication: FABRY^S DISEASE
     Dosage: 1.30 MG/KG, Q2W
     Route: 042
     Dates: start: 20120813
  2. LOSARTAN [Suspect]
     Indication: BLOOD PRESSURE
     Dosage: 12.5 MG, QD
     Route: 065
  3. ZOLOFT [Concomitant]
     Indication: AFFECTIVE DISORDER
     Dosage: 100 MG, QD
     Route: 065
     Dates: start: 20130411
  4. SYNTHROID [Concomitant]
     Indication: HYPOTHYROIDISM
     Dosage: 100 MCG, QD
     Route: 065
     Dates: start: 20120813
  5. ALLEGRA [Concomitant]
     Indication: PREMEDICATION
     Dosage: UNK
     Route: 065
     Dates: start: 20120813
  6. MULTIVITAMIN [Concomitant]
     Indication: PRODUCT USED FOR UNKNOWN INDICATION
     Dosage: 1 DF, QD
     Route: 065
     Dates: start: 20120813
  7. EMERGENCY MEDICATIONS [Concomitant]
     Indication: PRODUCT USED FOR UNKNOWN INDICATION
     Dosage: UNK
     Route: 065
     Dates: start: 20120813
  8. APAP [Concomitant]
     Indication: PREMEDICATION
     Dosage: UNK
     Route: 065

REACTIONS (1)
  - Syncope [Recovered/Resolved]
